FAERS Safety Report 9834888 (Version 2)
Quarter: 2014Q1

REPORT INFORMATION
  Report Type: Spontaneous
  Country: US (occurrence: US)
  Receive Date: 20140122
  Receipt Date: 20140206
  Transmission Date: 20141002
  Serious: Yes (Death)
  Sender: FDA-Public Use
  Company Number: US-GLAXOSMITHKLINE-A1056779A

PATIENT
  Age: 35 Year
  Sex: Female

DRUGS (5)
  1. ARIXTRA [Suspect]
     Indication: PULMONARY EMBOLISM
     Dosage: 10MG PER DAY
     Route: 058
     Dates: start: 201306
  2. NORCO [Concomitant]
  3. LEVOTHYROXIN [Concomitant]
  4. FLUOXETINE [Concomitant]
  5. KLONOPIN [Concomitant]

REACTIONS (2)
  - Death [Fatal]
  - Road traffic accident [Unknown]
